FAERS Safety Report 13260955 (Version 3)
Quarter: 2017Q2

REPORT INFORMATION
  Report Type: Spontaneous
  Country: IN (occurrence: IN)
  Receive Date: 20170222
  Receipt Date: 20170426
  Transmission Date: 20170830
  Serious: Yes (Death, Life-Threatening)
  Sender: FDA-Public Use
  Company Number: IN-GE HEALTHCARE LIFE SCIENCES-2017CSU000092

PATIENT

DRUGS (1)
  1. OMNIPAQUE [Suspect]
     Active Substance: IOHEXOL
     Indication: PRODUCT USED FOR UNKNOWN INDICATION
     Dosage: 90 ML, SINGLE
     Route: 042
     Dates: start: 20170214, end: 20170214

REACTIONS (1)
  - Choking [Fatal]

NARRATIVE: CASE EVENT DATE: 20170214
